FAERS Safety Report 12340881 (Version 4)
Quarter: 2016Q2

REPORT INFORMATION
  Report Type: Spontaneous
  Country: US (occurrence: US)
  Receive Date: 20160506
  Receipt Date: 20160616
  Transmission Date: 20160815
  Serious: Yes (Hospitalization)
  Sender: FDA-Public Use
  Company Number: US-PFIZER INC-2016203359

PATIENT
  Age: 54 Year
  Sex: Female

DRUGS (1)
  1. RAPAMUNE [Suspect]
     Active Substance: SIROLIMUS
     Indication: RENAL DISORDER
     Dosage: 1 MG TAB, 4X/DAY
     Route: 048
     Dates: start: 20160401

REACTIONS (4)
  - Pyrexia [Recovered/Resolved]
  - Pharyngeal oedema [Recovered/Resolved]
  - Malaise [Recovered/Resolved]
  - Immunosuppressant drug level increased [Unknown]

NARRATIVE: CASE EVENT DATE: 201604
